FAERS Safety Report 14741945 (Version 1)
Quarter: 2018Q2

REPORT INFORMATION
  Report Type: Spontaneous
  Country: US (occurrence: US)
  Receive Date: 20180410
  Receipt Date: 20180410
  Transmission Date: 20180711
  Serious: No
  Sender: FDA-Public Use
  Company Number: US-BAYER-2018-062855

PATIENT
  Age: 81 Year
  Sex: Female
  Weight: 69.98 kg

DRUGS (2)
  1. MIRALAX [Suspect]
     Active Substance: POLYETHYLENE GLYCOL 3350
     Indication: GASTROINTESTINAL DISORDER
     Dosage: 1 DF, QD
     Route: 048
     Dates: start: 201803
  2. SYNTHROID [Concomitant]
     Active Substance: LEVOTHYROXINE SODIUM

REACTIONS (8)
  - Abdominal pain upper [Unknown]
  - Malaise [None]
  - Extra dose administered [Unknown]
  - Diarrhoea [Unknown]
  - Product use issue [Unknown]
  - Weight increased [Unknown]
  - Drug intolerance [Unknown]
  - Unevaluable event [Unknown]

NARRATIVE: CASE EVENT DATE: 201803
